FAERS Safety Report 5219834-9 (Version None)
Quarter: 2007Q1

REPORT INFORMATION
  Report Type: 
  Country: None (occurrence: None)
  Receive Date: 20070125
  Receipt Date: 20070116
  Transmission Date: 20070707
  Serious: Yes (Life-Threatening)
  Sender: FDA-Public Use
  Company Number: IT-PFIZER INC-2007004540

PATIENT
  Sex: Female

DRUGS (3)
  1. LYRICA [Suspect]
     Indication: NEURALGIA
     Route: 048
     Dates: start: 20061215, end: 20061230
  2. LANSOPRAZOLE [Concomitant]
     Route: 048
  3. HUMALOG [Concomitant]

REACTIONS (2)
  - DIZZINESS [None]
  - FALL [None]
